FAERS Safety Report 7378308-X (Version None)
Quarter: 2011Q1

REPORT INFORMATION
  Report Type: 
  Country: None (occurrence: None)
  Receive Date: 20110328
  Receipt Date: 20110316
  Transmission Date: 20110831
  Serious: Yes (Hospitalization)
  Sender: FDA-Public Use
  Company Number: FR-PFIZER INC-2011067134

PATIENT
  Age: 80 Year
  Sex: Male

DRUGS (7)
  1. ATENOLOL [Suspect]
     Dosage: 50 MG, DAILY
     Route: 048
     Dates: start: 20100611
  2. TRIATEC [Suspect]
     Dosage: 2.5 MG, DAILY
     Route: 048
     Dates: start: 20100611
  3. XENETIX [Suspect]
     Dosage: 1 DF, ONCE
     Route: 042
     Dates: start: 20100611, end: 20100611
  4. PLAVIX [Suspect]
     Dosage: 75 MG, 2X/DAY
     Route: 048
     Dates: start: 20100611, end: 20100627
  5. PLAVIX [Suspect]
     Dosage: 75 MG, 1X/DAY
     Route: 048
     Dates: start: 20100627
  6. TAHOR [Suspect]
     Dosage: 40 MG, DAILY
     Route: 048
     Dates: start: 20100611
  7. KARDEGIC [Concomitant]
     Dosage: 160 MG, DAILY
     Route: 048
     Dates: start: 20100611

REACTIONS (1)
  - PURPURA [None]
